FAERS Safety Report 25160643 (Version 2)
Quarter: 2025Q2

REPORT INFORMATION
  Report Type: Spontaneous
  Country: AU (occurrence: AU)
  Receive Date: 20250404
  Receipt Date: 20250514
  Transmission Date: 20250717
  Serious: Yes (Other)
  Sender: BAUSCH AND LOMB
  Company Number: AU-BAUSCHBL-2025BNL005468

PATIENT
  Age: 45 Year
  Sex: Male

DRUGS (1)
  1. PREDNISOLONE [Suspect]
     Active Substance: PREDNISOLONE
     Indication: Product used for unknown indication
     Route: 065

REACTIONS (61)
  - Adrenal suppression [Unknown]
  - Suicidal ideation [Unknown]
  - Psychotic symptom [Unknown]
  - Immunosuppression [Unknown]
  - Hypokalaemia [Unknown]
  - Hallucination [Unknown]
  - Gastrointestinal haemorrhage [Unknown]
  - Gastric ulcer [Unknown]
  - Erectile dysfunction [Unknown]
  - Deep vein thrombosis [Unknown]
  - Cushing^s syndrome [Unknown]
  - Acne [Unknown]
  - Affect lability [Unknown]
  - Aggression [Unknown]
  - Anxiety [Unknown]
  - Appetite disorder [Unknown]
  - Arthralgia [Unknown]
  - Asthenia [Unknown]
  - Blood cholesterol increased [Unknown]
  - Blood triglycerides increased [Unknown]
  - Brain fog [Unknown]
  - Central obesity [Unknown]
  - Cognitive disorder [Unknown]
  - Cushingoid [Unknown]
  - Delusion [Unknown]
  - Depression [Unknown]
  - Disturbance in attention [Unknown]
  - Dizziness [Unknown]
  - Dyspnoea [Unknown]
  - Electrolyte imbalance [Unknown]
  - Fatigue [Unknown]
  - Fluid retention [Unknown]
  - Gastrooesophageal reflux disease [Unknown]
  - General physical health deterioration [Unknown]
  - Headache [Unknown]
  - Hypernatraemia [Unknown]
  - Hypotension [Unknown]
  - Impaired healing [Unknown]
  - Increased appetite [Unknown]
  - Increased tendency to bruise [Unknown]
  - Insomnia [Unknown]
  - Irritability [Unknown]
  - Libido decreased [Unknown]
  - Lipohypertrophy [Unknown]
  - Mood swings [Unknown]
  - Muscle atrophy [Unknown]
  - Muscular weakness [Unknown]
  - Myalgia [Unknown]
  - Myopathy [Unknown]
  - Nausea [Unknown]
  - Nervousness [Unknown]
  - Oedema [Unknown]
  - Skin atrophy [Unknown]
  - Skin striae [Unknown]
  - Sleep disorder [Unknown]
  - Swelling [Unknown]
  - Thinking abnormal [Unknown]
  - Vision blurred [Unknown]
  - Visual impairment [Unknown]
  - Vomiting [Unknown]
  - Weight increased [Unknown]
